FAERS Safety Report 4993523-8 (Version None)
Quarter: 2006Q2

REPORT INFORMATION
  Report Type: 
  Country: None (occurrence: None)
  Receive Date: 20060503
  Receipt Date: 20060503
  Transmission Date: 20061013
  Serious: Yes (Hospitalization)
  Sender: FDA-Public Use
  Company Number: None

PATIENT
  Sex: Female
  Weight: 63.5 kg

DRUGS (3)
  1. AVASTIN [Suspect]
     Indication: MALIGNANT MELANOMA
     Dosage: 640 MG IV Q 15 DAYS
     Route: 042
     Dates: start: 20060330
  2. AVASTIN [Suspect]
     Indication: MALIGNANT MELANOMA
     Dosage: 640 MG IV Q 15 DAYS
     Route: 042
     Dates: start: 20060413
  3. TARCEVA [Suspect]
     Indication: MALIGNANT MELANOMA
     Dosage: 150 MG PO QD
     Route: 048
     Dates: start: 20060330, end: 20060427

REACTIONS (8)
  - ANOREXIA [None]
  - CONSTIPATION [None]
  - DEHYDRATION [None]
  - DIARRHOEA [None]
  - DYSURIA [None]
  - PAIN [None]
  - RASH [None]
  - REFUSAL OF TREATMENT BY PATIENT [None]
